FAERS Safety Report 8610598-5 (Version None)
Quarter: 2012Q3

REPORT INFORMATION
  Report Type: 
  Country: None (occurrence: None)
  Receive Date: 20120822
  Receipt Date: 20120820
  Transmission Date: 20120928
  Serious: Yes (Other)
  Sender: FDA-Public Use
  Company Number: PHEH2012US011507

PATIENT
  Sex: Female

DRUGS (2)
  1. EXTAVIA [Suspect]
     Indication: RELAPSING-REMITTING MULTIPLE SCLEROSIS
     Dosage: 0.3 MG, QOD
     Route: 058
     Dates: start: 20120401
  2. EXTAVIA [Suspect]
     Indication: MULTIPLE SCLEROSIS
     Dosage: 0.25 MG, QOD
     Route: 058

REACTIONS (9)
  - SKIN REACTION [None]
  - INJECTION SITE REACTION [None]
  - INJECTION SITE SWELLING [None]
  - OPTIC NEURITIS [None]
  - PRURITUS [None]
  - INJECTION SITE WARMTH [None]
  - ALANINE AMINOTRANSFERASE INCREASED [None]
  - INJECTION SITE PAIN [None]
  - INJECTION SITE ERYTHEMA [None]
